FAERS Safety Report 9520403 (Version 1)
Quarter: 2013Q3

REPORT INFORMATION
  Report Type: Report from Study
  Country: US (occurrence: US)
  Receive Date: 20130912
  Receipt Date: 20130912
  Transmission Date: 20140515
  Serious: Yes (Other)
  Sender: FDA-Public Use
  Company Number: US-ABBOTT-13P-163-1142630-00

PATIENT
  Sex: Male

DRUGS (2)
  1. HUMIRA [Suspect]
     Indication: PSORIATIC ARTHROPATHY
     Dates: start: 201110
  2. METFORMIN [Concomitant]
     Indication: DIABETES MELLITUS
     Dosage: LIGHT DOSE BUT I DON^T KNOW HOW MANY MG^S

REACTIONS (3)
  - Plantar fasciitis [Recovering/Resolving]
  - Nail bed infection [Recovered/Resolved]
  - Onychomadesis [Not Recovered/Not Resolved]
